FAERS Safety Report 12241330 (Version 3)
Quarter: 2016Q3

REPORT INFORMATION
  Report Type: Spontaneous
  Country: US (occurrence: US)
  Receive Date: 20160406
  Receipt Date: 20160819
  Transmission Date: 20161109
  Serious: No
  Sender: FDA-Public Use
  Company Number: US-ASTRAZENECA-2016SE27913

PATIENT
  Age: 29983 Day
  Sex: Female
  Weight: 49.9 kg

DRUGS (6)
  1. SYMBICORT [Suspect]
     Active Substance: BUDESONIDE\FORMOTEROL FUMARATE DIHYDRATE
     Indication: EMPHYSEMA
     Dosage: 80/4.5 MCG, TWO TIMES A DAY
     Route: 055
     Dates: start: 2006
  2. FLUTICASONE [Concomitant]
     Active Substance: FLUTICASONE\FLUTICASONE PROPIONATE
     Indication: SINUS DISORDER
     Dosage: DAILY
  3. NASAL WASH [Concomitant]
     Indication: SINUS DISORDER
     Dosage: DAILY
  4. SYMBICORT [Suspect]
     Active Substance: BUDESONIDE\FORMOTEROL FUMARATE DIHYDRATE
     Indication: EMPHYSEMA
     Dosage: 80/4.5 MCG, TWO TIMES A DAY
     Route: 055
     Dates: start: 201602
  5. SPIRIVA [Concomitant]
     Active Substance: TIOTROPIUM BROMIDE MONOHYDRATE
     Indication: EMPHYSEMA
     Dosage: DAILY
     Route: 055
  6. BLOOD THINNER [Concomitant]
     Active Substance: UNSPECIFIED INGREDIENT
     Indication: ANTICOAGULANT THERAPY

REACTIONS (6)
  - Influenza [Unknown]
  - Cough [Unknown]
  - Drug dose omission [Unknown]
  - Pain [Unknown]
  - Fatigue [Unknown]
  - Product quality issue [Unknown]

NARRATIVE: CASE EVENT DATE: 20160308
